FAERS Safety Report 6477344-5 (Version None)
Quarter: 2009Q4

REPORT INFORMATION
  Report Type: 
  Country: None (occurrence: None)
  Receive Date: 20091207
  Receipt Date: 20091125
  Transmission Date: 20100525
  Serious: Yes (Hospitalization)
  Sender: FDA-Public Use
  Company Number: DE-ELI_LILLY_AND_COMPANY-DE200908003904

PATIENT
  Sex: Female
  Weight: 67 kg

DRUGS (8)
  1. PEMETREXED [Suspect]
     Indication: NON-SMALL CELL LUNG CANCER
     Dosage: 500 MG/M2, EVERY 3 WEEKS
     Dates: start: 20081006
  2. TARCEVA [Suspect]
     Indication: NON-SMALL CELL LUNG CANCER
     Dosage: 150 MG, DAILY (1/D)
     Dates: start: 20081006
  3. FOLIC ACID [Concomitant]
     Indication: SUPPLEMENTATION THERAPY
     Dosage: 0.4 MG, UNK
     Route: 048
     Dates: start: 20080925
  4. VIT B12 [Concomitant]
     Indication: SUPPLEMENTATION THERAPY
     Dosage: 1000 UG, UNK
     Route: 030
     Dates: start: 20080925
  5. DEXAMETHASONE TAB [Concomitant]
     Indication: SUPPLEMENTATION THERAPY
     Dosage: 4 MG, UNK
     Route: 048
     Dates: start: 20081005
  6. DEXPANTHENOL [Concomitant]
     Indication: DRY EYE
     Dosage: UNK, 3/D
     Dates: start: 20081027
  7. PANTOPRAZOL [Concomitant]
     Indication: PROPHYLAXIS
     Dosage: 40 UG, 2/D
     Dates: start: 20080717
  8. METOCLOPRAMIDE [Concomitant]
     Indication: NAUSEA
     Dosage: 20 D/F, 3/D
     Dates: start: 20080717

REACTIONS (4)
  - DIARRHOEA [None]
  - GASTRITIS [None]
  - RENAL FAILURE [None]
  - VOMITING [None]
